FAERS Safety Report 6591112-5 (Version None)
Quarter: 2010Q1

REPORT INFORMATION
  Report Type: 
  Country: None (occurrence: None)
  Receive Date: 20100205
  Receipt Date: 20100120
  Transmission Date: 20100710
  Serious: Yes (Other)
  Sender: FDA-Public Use
  Company Number: 1-21365361

PATIENT
  Age: 80 Year
  Sex: Male

DRUGS (4)
  1. WARFARIN SODIUM [Suspect]
  2. DILTIAZEM HCL [Concomitant]
  3. INSULIN [Concomitant]
  4. DONEPEZIL HCL [Concomitant]

REACTIONS (6)
  - DIALYSIS [None]
  - INTERNATIONAL NORMALISED RATIO INCREASED [None]
  - OVERDOSE [None]
  - RENAL FAILURE ACUTE [None]
  - RENAL HAEMORRHAGE [None]
  - RENAL TUBULAR DISORDER [None]
